FAERS Safety Report 10051678 (Version 1)
Quarter: 2014Q2

REPORT INFORMATION
  Report Type: Spontaneous
  Country: US (occurrence: US)
  Receive Date: 20140401
  Receipt Date: 20140401
  Transmission Date: 20141212
  Serious: No
  Sender: FDA-Public Use
  Company Number: US-009507513-1403MEX014215

PATIENT
  Sex: Female

DRUGS (3)
  1. JANUMET [Suspect]
     Dosage: UNK, BID
     Route: 048
  2. GALVUS MET [Suspect]
     Dosage: TWICE A DAY
  3. ACTOS [Concomitant]

REACTIONS (3)
  - Weight increased [Unknown]
  - Fluid intake reduced [Unknown]
  - Swelling [Unknown]
